FAERS Safety Report 4299244-1 (Version None)
Quarter: 2004Q1

REPORT INFORMATION
  Report Type: 
  Country: None (occurrence: None)
  Receive Date: 20040217
  Receipt Date: 20040204
  Transmission Date: 20041129
  Serious: Yes (Hospitalization, Other)
  Sender: FDA-Public Use
  Company Number: 2004007887

PATIENT
  Age: 89 Year
  Sex: Female
  Weight: 56.246 kg

DRUGS (11)
  1. DILANTIN [Suspect]
     Indication: BLOOD LACTIC ACID
     Dosage: 200 MG (100 BID), ORAL
     Route: 048
     Dates: start: 20040122
  2. DILANTIN [Suspect]
     Indication: CONVULSION
     Dosage: 200 MG (100 BID), ORAL
     Route: 048
     Dates: start: 20040122
  3. UNASYN [Suspect]
     Indication: RESPIRATORY DISTRESS
     Dates: start: 20040121
  4. GATIFLOXACIN (GATIFLOXACIN) [Suspect]
     Indication: RESPIRATORY DISTRESS
     Dates: start: 20040121
  5. PREDNISONE [Suspect]
     Indication: ILL-DEFINED DISORDER
     Dates: end: 20040128
  6. AMLODIPINE BESYLATE [Concomitant]
  7. RANITIDINE HYDROCHLORIDE [Concomitant]
  8. ACETYLSALICYLIC ACID SRT [Concomitant]
  9. CENTRUM (VITAMINS NOS, MINERALS NOS) [Concomitant]
  10. MULTIVITAMIN [Concomitant]
  11. ENSURE (VITAMINS NOS, MINERALS NOS, AMINO ACIDS NOS) [Concomitant]

REACTIONS (8)
  - ANTICONVULSANT DRUG LEVEL DECREASED [None]
  - BLOOD GLUCOSE INCREASED [None]
  - DIARRHOEA [None]
  - GAIT DISTURBANCE [None]
  - HYPOTONIA [None]
  - HYPOVOLAEMIA [None]
  - VASCULAR DEMENTIA [None]
  - VOMITING [None]
